FAERS Safety Report 7953072-1 (Version None)
Quarter: 2011Q4

REPORT INFORMATION
  Report Type: 
  Country: None (occurrence: None)
  Receive Date: 20111201
  Receipt Date: 20111125
  Transmission Date: 20120403
  Serious: Yes (Hospitalization)
  Sender: FDA-Public Use
  Company Number: GB-PFIZER INC-2011289126

PATIENT
  Age: 36 Year
  Sex: Female

DRUGS (5)
  1. FOLIC ACID [Concomitant]
     Dosage: 5 MG, 1X/DAY
     Route: 048
  2. PREGABALIN [Concomitant]
     Indication: EPILEPSY
     Dosage: 75 MG, 2X/DAY
     Route: 048
  3. LEVETIRACETAM [Concomitant]
     Indication: EPILEPSY
     Dosage: 250 MG, 2X/DAY
     Route: 048
  4. DIAZEPAM [Suspect]
     Indication: CONVULSION
     Dosage: 10 MG, BOLUS
     Route: 042
     Dates: start: 20110116
  5. PHENYTOIN SODIUM [Suspect]
     Indication: CONVULSION
     Dosage: 1125 MG
     Route: 042
     Dates: start: 20110116, end: 20110116

REACTIONS (1)
  - CEREBRAL VENOUS THROMBOSIS [None]
